FAERS Safety Report 15666409 (Version 1)
Quarter: 2018Q4

REPORT INFORMATION
  Report Type: Spontaneous
  Country: AU (occurrence: AU)
  Receive Date: 20181128
  Receipt Date: 20181128
  Transmission Date: 20190205
  Serious: Yes (Hospitalization, Other)
  Sender: FDA-Public Use
  Company Number: AU-ALLERGAN-1855114US

PATIENT
  Age: 77 Year
  Sex: Male

DRUGS (1)
  1. OXYBUTYNIN PCH - BP [Suspect]
     Active Substance: OXYBUTYNIN
     Indication: POLLAKIURIA
     Dosage: 3.9 MG, PER DAY
     Route: 062
     Dates: start: 201807

REACTIONS (3)
  - Aphasia [Unknown]
  - Confusional state [Unknown]
  - Creutzfeldt-Jakob disease [Unknown]

NARRATIVE: CASE EVENT DATE: 201811
